FAERS Safety Report 8842686 (Version 1)
Quarter: 2012Q4

REPORT INFORMATION
  Report Type: 
  Country: US (occurrence: US)
  Receive Date: 20121016
  Receipt Date: 20121016
  Transmission Date: 20130627
  Serious: No
  Sender: FDA-Public Use
  Company Number: US-PFIZER INC-2012255763

PATIENT
  Sex: Female

DRUGS (1)
  1. ADVIL COLD AND SINUS [Suspect]
     Dosage: UNK

REACTIONS (3)
  - Hyperhidrosis [Unknown]
  - Rash generalised [Unknown]
  - Skin disorder [Unknown]
